FAERS Safety Report 10164065 (Version 1)
Quarter: 2014Q2

REPORT INFORMATION
  Report Type: Spontaneous
  Country: US (occurrence: US)
  Receive Date: 20140510
  Receipt Date: 20140510
  Transmission Date: 20141212
  Serious: No
  Sender: FDA-Public Use
  Company Number: US-BRISTOL-MYERS SQUIBB COMPANY-19889203

PATIENT
  Age: 75 Year
  Sex: Male
  Weight: 78.91 kg

DRUGS (7)
  1. BYETTA 2MG SUSPENSION [Suspect]
     Indication: TYPE 2 DIABETES MELLITUS
     Route: 058
     Dates: start: 20130923
  2. LANTUS [Suspect]
     Dosage: 1DF:36 UNITS
  3. NOVOLOG [Suspect]
     Dosage: 1DF:10 UNITS INITIALLY AND LATER 5 UNITS AND WITHDRAWN
  4. LIPITOR [Concomitant]
  5. AMLODIPINE BESYLATE [Concomitant]
  6. RAMIPRIL [Concomitant]
  7. INVOKANA [Concomitant]

REACTIONS (3)
  - Glycosylated haemoglobin increased [Unknown]
  - Weight decreased [Unknown]
  - Blood glucose decreased [Unknown]
